FAERS Safety Report 20812115 (Version 1)
Quarter: 2022Q2

REPORT INFORMATION
  Report Type: Spontaneous
  Country: US (occurrence: US)
  Receive Date: 20220511
  Receipt Date: 20220511
  Transmission Date: 20220721
  Serious: No
  Sender: FDA-Public Use
  Company Number: US-BoehringerIngelheim-2022-BI-169837

PATIENT
  Age: 68 Year
  Sex: Female

DRUGS (5)
  1. JARDIANCE [Suspect]
     Active Substance: EMPAGLIFLOZIN
     Indication: Product used for unknown indication
     Dosage: UNKNOWN
  2. TRULICITY [Suspect]
     Active Substance: DULAGLUTIDE
     Indication: Product used for unknown indication
     Dosage: WEEKLY
  3. TRULICITY [Suspect]
     Active Substance: DULAGLUTIDE
     Dates: start: 202109
  4. TRULICITY [Suspect]
     Active Substance: DULAGLUTIDE
     Dosage: ON THE ADVICE OF HER HEALTHCARE PROFESSIONAL, SHE ADMINISTERED 2 TIMES 0.75MG DOSES A WEEK FOR TWO W
     Dates: start: 202201
  5. METFORMIN [Concomitant]
     Active Substance: METFORMIN HYDROCHLORIDE
     Indication: Product used for unknown indication

REACTIONS (8)
  - Injection site pruritus [Unknown]
  - Nausea [Unknown]
  - Decreased appetite [Unknown]
  - Diarrhoea [Unknown]
  - Injection site erythema [Unknown]
  - Injection site bruising [Recovering/Resolving]
  - Injection site discomfort [Unknown]
  - Urinary tract infection [Unknown]
